FAERS Safety Report 8575895-0 (Version None)
Quarter: 2012Q3

REPORT INFORMATION
  Report Type: 
  Country: None (occurrence: None)
  Receive Date: 20120807
  Receipt Date: 20120727
  Transmission Date: 20120928
  Serious: Yes (Hospitalization, Other)
  Sender: FDA-Public Use
  Company Number: US-BAYER-2011-033910

PATIENT
  Age: 29 Year
  Sex: Female
  Weight: 77.098 kg

DRUGS (19)
  1. LEXAPRO [Concomitant]
     Dosage: 10 MG, DAILY
     Dates: start: 20090823
  2. LEXAPRO [Concomitant]
     Dosage: 10 MG, DAILY
     Route: 048
     Dates: start: 20090529
  3. METRONIDAZOLE [Concomitant]
     Route: 067
  4. CIPROFLOXACIN [Concomitant]
     Dosage: 500 MG, UNK
  5. ATIVAN [Concomitant]
     Indication: ANXIETY
     Dosage: 1 MG, QID DAILY
  6. VASOTEC [Concomitant]
  7. GEODON [Concomitant]
     Dosage: 80 MG, UNK
  8. PROPRANOLOL [Concomitant]
     Dosage: 40 MG, UNK
  9. LORAZEPAM [Concomitant]
     Dosage: 1 MG, QID
     Route: 048
     Dates: start: 20090823
  10. LAMICTAL [Concomitant]
  11. ADDERALL XR 10 [Concomitant]
     Dosage: 30 MG, UNK
  12. HYDROCODONE BITARTRATE AND ACETAMINOPHEN [Concomitant]
     Dosage: 5-500 MG
     Route: 048
     Dates: start: 20090507
  13. IMIDAZOLE DERIVATIVES [Concomitant]
     Dosage: 0.75 %, 1 APPLICATOR AT BEDTIME
     Route: 067
     Dates: start: 20090602
  14. LAMOTRIGINE [Concomitant]
     Dosage: 200 MG, UNK
  15. ALPRAZOLAM [Concomitant]
     Dosage: 1 MG, UNK
  16. ADDERALL 5 [Concomitant]
  17. YAZ [Suspect]
     Indication: PREMENSTRUAL SYNDROME
     Dosage: UNK
     Dates: start: 20090101, end: 20090101
  18. LORTAB [Concomitant]
  19. INDERAL [Concomitant]

REACTIONS (6)
  - GALLBLADDER INJURY [None]
  - PULMONARY EMBOLISM [None]
  - PAIN [None]
  - DEPRESSION [None]
  - INJURY [None]
  - DEEP VEIN THROMBOSIS [None]
